FAERS Safety Report 8216685-8 (Version None)
Quarter: 2012Q1

REPORT INFORMATION
  Report Type: 
  Country: None (occurrence: None)
  Receive Date: 20120316
  Receipt Date: 20120306
  Transmission Date: 20120608
  Serious: Yes (Hospitalization)
  Sender: FDA-Public Use
  Company Number: CA-PERRIGO-12CA002133

PATIENT
  Age: 2 Year
  Sex: Male
  Weight: 12.5 kg

DRUGS (1)
  1. IBUPROFEN [Suspect]
     Indication: ACCIDENTAL DRUG INTAKE BY CHILD
     Dosage: 8000 MG, SINGLE
     Route: 048

REACTIONS (7)
  - IRRITABILITY [None]
  - METABOLIC ACIDOSIS [None]
  - LETHARGY [None]
  - HEART RATE INCREASED [None]
  - OVERDOSE [None]
  - RENAL FAILURE [None]
  - HAEMATURIA [None]
